FAERS Safety Report 9340909 (Version 2)
Quarter: 2013Q2

REPORT INFORMATION
  Report Type: Spontaneous
  Country: PL (occurrence: PL)
  Receive Date: 20130610
  Receipt Date: 20130628
  Transmission Date: 20140414
  Serious: Yes (Other)
  Sender: FDA-Public Use
  Company Number: PL-BAXTER-2013BAX020785

PATIENT
  Age: 16 Year
  Sex: Female

DRUGS (20)
  1. ENDOXAN [Suspect]
     Indication: SYSTEMIC LUPUS ERYTHEMATOSUS
     Dosage: 10 PULSES
     Route: 042
     Dates: start: 200412, end: 200511
  2. ENDOXAN [Suspect]
     Dosage: 3 PULSES
     Route: 042
     Dates: start: 200511, end: 200608
  3. ENDOXAN [Suspect]
     Dates: start: 200902, end: 200903
  4. ENDOXAN [Suspect]
     Route: 042
     Dates: end: 201001
  5. KIOVIG HUMAN NORMAL IMMUNOGLOBULIN (IVIG) 10% [Suspect]
     Indication: SYSTEMIC LUPUS ERYTHEMATOSUS
  6. IMURAN /00001501/ [Suspect]
     Indication: SYSTEMIC LUPUS ERYTHEMATOSUS
     Route: 065
     Dates: start: 200702
  7. METHYLPREDNISOLONE [Suspect]
     Indication: SYSTEMIC LUPUS ERYTHEMATOSUS
     Route: 065
     Dates: end: 200901
  8. MYCOPHENOLATE MOFETIL [Suspect]
     Indication: SYSTEMIC LUPUS ERYTHEMATOSUS
     Route: 065
     Dates: start: 200705
  9. MYCOPHENOLATE MOFETIL [Suspect]
     Dates: start: 200903
  10. MYCOPHENOLATE MOFETIL [Suspect]
     Dates: start: 201002, end: 201002
  11. MYCOPHENOLATE MOFETIL [Suspect]
     Dates: start: 201004, end: 201004
  12. CYCLOSPORIN A [Suspect]
     Indication: SYSTEMIC LUPUS ERYTHEMATOSUS
     Route: 065
     Dates: start: 200702, end: 200705
  13. CYCLOSPORIN A [Suspect]
     Dates: start: 201004, end: 201004
  14. CYCLOSPORIN A [Suspect]
     Dates: start: 201105, end: 201105
  15. RITUXIMAB [Suspect]
     Indication: SYSTEMIC LUPUS ERYTHEMATOSUS
     Route: 065
     Dates: start: 20100123, end: 20100123
  16. RITUXIMAB [Suspect]
     Route: 065
     Dates: start: 20100206, end: 20100206
  17. PREDNISONE [Suspect]
     Indication: SYSTEMIC LUPUS ERYTHEMATOSUS
     Dates: start: 200705
  18. PREDNISONE [Suspect]
     Dates: start: 200903, end: 201001
  19. PREDNISONE [Suspect]
     Dates: start: 201004
  20. PREDNISONE [Suspect]
     Dates: start: 201105

REACTIONS (4)
  - Disease progression [Not Recovered/Not Resolved]
  - Treatment failure [Not Recovered/Not Resolved]
  - Pneumonia [Unknown]
  - Headache [Unknown]
